FAERS Safety Report 17210956 (Version 5)
Quarter: 2020Q2

REPORT INFORMATION
  Report Type: Report from Study
  Country: RO (occurrence: RO)
  Receive Date: 20191227
  Receipt Date: 20200521
  Transmission Date: 20200713
  Serious: Yes (Hospitalization)
  Sender: FDA-Public Use
  Company Number: RO-AMGEN-ROUCT2019213951

PATIENT
  Age: 67 Year
  Sex: Male
  Weight: 65 kg

DRUGS (21)
  1. DARATUMUMAB [Suspect]
     Active Substance: DARATUMUMAB
     Indication: PLASMA CELL MYELOMA
     Dosage: 1040 MILLIGRAM, PER CHEMO REGIM
     Route: 042
     Dates: start: 20180215
  2. ALANERV [Concomitant]
     Active Substance: DIETARY SUPPLEMENT
     Dosage: 920 MILLIGRAM
     Dates: start: 20190723
  3. HALOPERIDOL. [Concomitant]
     Active Substance: HALOPERIDOL
     Dosage: 5-10 GTT DROPS
     Dates: start: 20191010, end: 20191225
  4. NEXIUM I.V. [Concomitant]
     Active Substance: ESOMEPRAZOLE SODIUM
     Dosage: 20 MILLIGRAM
     Dates: start: 20191128, end: 20191222
  5. CARFILZOMIB [Suspect]
     Active Substance: CARFILZOMIB
     Indication: PLASMA CELL MYELOMA
     Dosage: 76 MILLIGRAM, PER CHEMO REGIM
     Route: 042
     Dates: start: 20180215
  6. DEBRIDAT [TRIMEBUTINE] [Concomitant]
     Active Substance: TRIMEBUTINE
     Dosage: 200 MILLIGRAM AND 2 UNK
     Dates: start: 20191010, end: 20200103
  7. MOTILIUM [Concomitant]
     Active Substance: DOMPERIDONE
     Dosage: 10 MILLIGRAM
     Dates: start: 20191128, end: 20191203
  8. SALINE [SODIUM CHLORIDE] [Concomitant]
     Active Substance: SODIUM CHLORIDE
     Dosage: 500 MILLILITER
     Route: 042
     Dates: start: 20180223, end: 20191222
  9. PARACETAMOL [Concomitant]
     Active Substance: ACETAMINOPHEN
     Dosage: 1 MILLIGRAM AND 1 GRAM
     Route: 042
     Dates: start: 20180215
  10. SILIMARINA [Concomitant]
     Dosage: 1 GRAM
     Dates: start: 1995
  11. ACICLOVIR [Concomitant]
     Active Substance: ACYCLOVIR
     Dosage: 200 MILLIGRAM
     Dates: start: 20180207
  12. AMLODIPINE [Concomitant]
     Active Substance: AMLODIPINE BESYLATE
     Dosage: 5-10 MILLIGRAM
     Dates: start: 20191128
  13. DEXAMETHASONE. [Concomitant]
     Active Substance: DEXAMETHASONE
     Indication: PLASMA CELL MYELOMA
     Dosage: 4-12 MILLIGRAM
     Route: 048
     Dates: start: 20190926
  14. METOPROLOL. [Concomitant]
     Active Substance: METOPROLOL
     Dosage: 25 MILLIGRAM
     Dates: start: 20191219
  15. MONTELUKAST [Concomitant]
     Active Substance: MONTELUKAST SODIUM
     Dosage: 10 MILLIGRAM
     Route: 048
     Dates: start: 20180215
  16. OCTANATE [Concomitant]
     Active Substance: ANTIHEMOPHILIC FACTOR HUMAN
     Dosage: 2000 INTERNATIONAL UNIT
     Dates: start: 20190724
  17. PRESTARIUM [PERINDOPRIL] [Concomitant]
     Dosage: 5 MILLIGRAM
     Dates: start: 20191219
  18. ZOLEDRONIC ACID [Concomitant]
     Active Substance: ZOLEDRONIC ACID
     Dosage: 4 MILLIGRAM AND  4 MILLIEQUIVALENT
     Route: 042
     Dates: start: 20180316
  19. METOCLOPRAMID [METOCLOPRAMIDE] [Concomitant]
     Active Substance: METOCLOPRAMIDE
     Dosage: 10 MILLIGRAM
     Dates: start: 20190620, end: 20191225
  20. CONTROLOC [Concomitant]
     Active Substance: PANTOPRAZOLE SODIUM
     Dosage: 40 MILLIGRAM
     Dates: start: 20180217
  21. AERIUS [EBASTINE] [Concomitant]
     Active Substance: EBASTINE
     Dosage: 5 MILLIGRAM
     Route: 048
     Dates: start: 20180215

REACTIONS (2)
  - Interstitial lung disease [Not Recovered/Not Resolved]
  - Hiccups [Recovered/Resolved]

NARRATIVE: CASE EVENT DATE: 20191220
